FAERS Safety Report 15788316 (Version 2)
Quarter: 2019Q1

REPORT INFORMATION
  Report Type: Report from Study
  Country: US (occurrence: US)
  Receive Date: 20190104
  Receipt Date: 20190114
  Transmission Date: 20190417
  Serious: Yes (Hospitalization, Other)
  Sender: FDA-Public Use
  Company Number: US-GILEAD-2019-0383019

PATIENT
  Age: 45 Year
  Sex: Male
  Weight: 64 kg

DRUGS (8)
  1. LYRICA [Concomitant]
     Active Substance: PREGABALIN
  2. REVATIO [Concomitant]
     Active Substance: SILDENAFIL CITRATE
  3. COREG [Concomitant]
     Active Substance: CARVEDILOL
  4. PROTONIX [OMEPRAZOLE] [Concomitant]
  5. PRILOSEC [Concomitant]
     Active Substance: OMEPRAZOLE MAGNESIUM
  6. AMBRISENTAN [Suspect]
     Active Substance: AMBRISENTAN
     Indication: PULMONARY ARTERIAL HYPERTENSION
     Dosage: 10 MG, QD
     Route: 065
     Dates: start: 20180302
  7. ELIQUIS [Concomitant]
     Active Substance: APIXABAN
  8. NORVASC [Concomitant]
     Active Substance: AMLODIPINE BESYLATE

REACTIONS (1)
  - Oesophageal stenosis [Not Recovered/Not Resolved]
